FAERS Safety Report 8781329 (Version 1)
Quarter: 2012Q4

REPORT INFORMATION
  Report Type: 
  Country: US (occurrence: US)
  Receive Date: 20120913
  Receipt Date: 20120913
  Transmission Date: 20130627
  Serious: Yes (Hospitalization, Other)
  Sender: FDA-Public Use
  Company Number: US-AMGEN-USASP2012057781

PATIENT
  Age: 63 Year
  Sex: Female

DRUGS (1)
  1. ENBREL [Suspect]
     Indication: RHEUMATOID ARTHRITIS
     Dosage: 25 mg, 2 times/wk
     Route: 058
     Dates: start: 20020215, end: 20120826

REACTIONS (7)
  - Gallbladder adenocarcinoma [Not Recovered/Not Resolved]
  - Gallbladder necrosis [Recovering/Resolving]
  - Basal cell carcinoma [Recovered/Resolved]
  - Post procedural constipation [Not Recovered/Not Resolved]
  - Rheumatoid arthritis [Not Recovered/Not Resolved]
  - Gastrooesophageal reflux disease [Recovered/Resolved]
  - Procedural pain [Not Recovered/Not Resolved]
